FAERS Safety Report 12953568 (Version 2)
Quarter: 2016Q4

REPORT INFORMATION
  Report Type: Spontaneous
  Country: IN (occurrence: IN)
  Receive Date: 20161117
  Receipt Date: 20161121
  Transmission Date: 20170207
  Serious: Yes (Hospitalization, Other)
  Sender: FDA-Public Use
  Company Number: IN-BAUSCH-BL-2016-027966

PATIENT
  Age: 51 Year
  Sex: Male

DRUGS (8)
  1. MANNITOL. [Suspect]
     Active Substance: MANNITOL
     Indication: BACILLUS INFECTION
     Route: 065
  2. CEFTRIAXONE SODIUM. [Suspect]
     Active Substance: CEFTRIAXONE SODIUM
     Indication: BACILLUS INFECTION
  3. AMIKACIN SULFATE. [Suspect]
     Active Substance: AMIKACIN SULFATE
     Indication: BRAIN ABSCESS
  4. METRONIDAZOLE. [Suspect]
     Active Substance: METRONIDAZOLE
     Indication: BRAIN ABSCESS
  5. CEFTRIAXONE SODIUM. [Suspect]
     Active Substance: CEFTRIAXONE SODIUM
     Indication: BRAIN ABSCESS
     Route: 065
  6. METRONIDAZOLE. [Suspect]
     Active Substance: METRONIDAZOLE
     Indication: BACILLUS INFECTION
     Route: 065
  7. AMIKACIN SULFATE. [Suspect]
     Active Substance: AMIKACIN SULFATE
     Indication: BACILLUS INFECTION
     Route: 065
  8. MANNITOL. [Suspect]
     Active Substance: MANNITOL
     Indication: BRAIN ABSCESS

REACTIONS (3)
  - Brain abscess [Recovered/Resolved]
  - Hemiparesis [Recovered/Resolved]
  - Drug ineffective [Unknown]
